FAERS Safety Report 13901109 (Version 1)
Quarter: 2017Q3

REPORT INFORMATION
  Report Type: Spontaneous
  Country: US (occurrence: None)
  Receive Date: 20170818
  Receipt Date: 20170818
  Transmission Date: 20171127
  Serious: No
  Sender: FDA-Public Use
  Company Number: None

PATIENT
  Age: 27 Month
  Sex: Female

DRUGS (1)
  1. REVATIO [Suspect]
     Active Substance: SILDENAFIL CITRATE

REACTIONS (3)
  - Drug dispensing error [None]
  - Drug dose omission [None]
  - Product preparation error [None]

NARRATIVE: CASE EVENT DATE: 20170817
